FAERS Safety Report 9676552 (Version 2)
Quarter: 2013Q4

REPORT INFORMATION
  Report Type: Spontaneous
  Country: US (occurrence: US)
  Receive Date: 20131107
  Receipt Date: 20131107
  Transmission Date: 20140711
  Serious: Yes (Other)
  Sender: FDA-Public Use
  Company Number: US-RB-060236-13

PATIENT
  Age: 23 Year
  Sex: Male

DRUGS (4)
  1. SUBOXONE FILM [Suspect]
     Indication: DRUG DEPENDENCE
     Dosage: SUBOXONE FILM
     Route: 060
     Dates: start: 201212, end: 201302
  2. SUBOXONE FILM [Suspect]
     Dosage: SUBOXONE FILM
     Route: 060
     Dates: start: 201304, end: 201307
  3. BUPRENORPHINE GENERIC [Suspect]
     Indication: DRUG DEPENDENCE
     Route: 060
     Dates: start: 201307, end: 201310
  4. BUPRENORPHINE GENERIC [Suspect]
     Dosage: THE PATEINT WAS CUTTING THE FILM TO STRETCH OUT DOSING; DOSING DETAILS UNKNOWN
     Route: 060
     Dates: start: 201310, end: 20131025

REACTIONS (10)
  - Hepatomegaly [Recovered/Resolved]
  - Drug dependence [Recovered/Resolved]
  - Hepatitis C [Recovered/Resolved]
  - Wrong technique in drug usage process [Recovered/Resolved]
  - Drug withdrawal syndrome [Not Recovered/Not Resolved]
  - Vomiting [Not Recovered/Not Resolved]
  - Dry mouth [Not Recovered/Not Resolved]
  - Disturbance in attention [Not Recovered/Not Resolved]
  - Confusional state [Not Recovered/Not Resolved]
  - Decreased interest [Not Recovered/Not Resolved]
